FAERS Safety Report 9842934 (Version 1)
Quarter: 2014Q1

REPORT INFORMATION
  Report Type: Spontaneous
  Country: ES (occurrence: ES)
  Receive Date: 20140124
  Receipt Date: 20140124
  Transmission Date: 20141002
  Serious: Yes (Hospitalization)
  Sender: FDA-Public Use
  Company Number: ES-GLAXOSMITHKLINE-B0962932A

PATIENT
  Age: 32 Year
  Sex: Male

DRUGS (7)
  1. BENLYSTA [Suspect]
     Indication: SYSTEMIC LUPUS ERYTHEMATOSUS
     Dosage: 760MG MONTHLY
     Route: 065
     Dates: start: 20120711, end: 20130625
  2. IMUREL [Suspect]
     Indication: SYSTEMIC LUPUS ERYTHEMATOSUS
     Dosage: 50MG PER DAY
     Route: 065
     Dates: start: 20051026, end: 20130808
  3. DACORTIN [Suspect]
     Indication: SYSTEMIC LUPUS ERYTHEMATOSUS
     Dosage: 5MG PER DAY
     Route: 065
     Dates: start: 20051026
  4. ADIRO [Concomitant]
     Indication: ANTIPHOSPHOLIPID SYNDROME
     Dosage: 100MG PER DAY
     Route: 065
     Dates: start: 20070501
  5. CANDESARTAN [Concomitant]
     Indication: HYPERTENSION
     Dosage: 16MG PER DAY
     Route: 065
  6. HIDROFEROL [Concomitant]
  7. OMEPRAZOLE [Concomitant]
     Route: 065

REACTIONS (5)
  - Herpes zoster [Recovered/Resolved]
  - Subcutaneous abscess [Recovered/Resolved]
  - Sepsis [Recovered/Resolved]
  - Systemic lupus erythematosus [Recovered/Resolved]
  - Oral candidiasis [Recovered/Resolved]
